FAERS Safety Report 11797097 (Version 1)
Quarter: 2015Q4

REPORT INFORMATION
  Report Type: Report from Study
  Country: US (occurrence: US)
  Receive Date: 20151203
  Receipt Date: 20151203
  Transmission Date: 20160305
  Serious: Yes (Death)
  Sender: FDA-Public Use
  Company Number: US-ACTELION-A-US2015-122979

PATIENT
  Age: 72 Year
  Sex: Female

DRUGS (2)
  1. TRACLEER [Suspect]
     Active Substance: BOSENTAN
     Indication: PULMONARY ARTERIAL HYPERTENSION
     Dosage: UNK
     Route: 048
     Dates: end: 20151119
  2. TREPROSTINIL DIOLAMIN [Concomitant]
     Active Substance: TREPROSTINIL DIOLAMINE
     Dosage: 2.25 MG, UNK

REACTIONS (8)
  - Death [Fatal]
  - Peripheral swelling [Unknown]
  - Pain in extremity [Unknown]
  - Dizziness [Unknown]
  - Condition aggravated [Unknown]
  - Dyspnoea [Unknown]
  - Diarrhoea [Recovered/Resolved]
  - Incontinence [Unknown]

NARRATIVE: CASE EVENT DATE: 20150812
